FAERS Safety Report 4636744-6 (Version None)
Quarter: 2005Q2

REPORT INFORMATION
  Report Type: 
  Country: None (occurrence: None)
  Receive Date: 20050414
  Receipt Date: 20050404
  Transmission Date: 20051028
  Serious: Yes (Hospitalization, Disabling)
  Sender: FDA-Public Use
  Company Number: 2005054828

PATIENT
  Age: 48 Year
  Sex: Male
  Weight: 80 kg

DRUGS (2)
  1. CELECOXIB (CELECOXIB) [Suspect]
     Indication: ARTHRALGIA
     Dosage: 200 MG (100 MG, 2 IN 1 D), ORAL
     Route: 048
     Dates: start: 20040504, end: 20041001
  2. LOFEPRAMINE (LOFEPRAMINE) [Concomitant]

REACTIONS (3)
  - ARTERY DISSECTION [None]
  - CEREBROVASCULAR ACCIDENT [None]
  - SPINAL VASCULAR DISORDER [None]
